FAERS Safety Report 7321013-6 (Version None)
Quarter: 2011Q1

REPORT INFORMATION
  Report Type: 
  Country: None (occurrence: None)
  Receive Date: 20110228
  Receipt Date: 20110218
  Transmission Date: 20110831
  Serious: Yes (Hospitalization)
  Sender: FDA-Public Use
  Company Number: US-JNJFOC-20101000216

PATIENT
  Sex: Female
  Weight: 46.27 kg

DRUGS (5)
  1. ACETAMINOPHEN [Concomitant]
     Indication: PREMEDICATION
  2. REMICADE [Suspect]
     Indication: CROHN'S DISEASE
     Route: 042
  3. ANTIHISTAMINES [Concomitant]
     Indication: PREMEDICATION
  4. ANTICOAGULANTS [Concomitant]
  5. STEROIDS NOS [Concomitant]
     Indication: PREMEDICATION

REACTIONS (10)
  - INTERNATIONAL NORMALISED RATIO INCREASED [None]
  - SEPSIS [None]
  - PANCREATITIS [None]
  - HYPOTENSION [None]
  - ESCHERICHIA INFECTION [None]
  - MEDICAL DEVICE COMPLICATION [None]
  - CANDIDIASIS [None]
  - STAPHYLOCOCCAL INFECTION [None]
  - PSEUDOMONAS INFECTION [None]
  - HEADACHE [None]
